FAERS Safety Report 17680370 (Version 2)
Quarter: 2020Q2

REPORT INFORMATION
  Report Type: Spontaneous
  Country: US (occurrence: US)
  Receive Date: 20200417
  Receipt Date: 20200427
  Transmission Date: 20200714
  Serious: No
  Sender: FDA-Public Use
  Company Number: US-GLAXOSMITHKLINE-US2020062243

PATIENT
  Sex: Male

DRUGS (1)
  1. FLONASE SENSIMIST ALLERGY RELIEF [Suspect]
     Active Substance: FLUTICASONE FUROATE
     Indication: NASOPHARYNGITIS
     Dosage: UNK
     Dates: start: 202002

REACTIONS (3)
  - Anosmia [Not Recovered/Not Resolved]
  - Product use in unapproved indication [Unknown]
  - Ageusia [Unknown]

NARRATIVE: CASE EVENT DATE: 20200408
